FAERS Safety Report 19714110 (Version 1)
Quarter: 2021Q3

REPORT INFORMATION
  Report Type: Spontaneous
  Country: US (occurrence: US)
  Receive Date: 20210818
  Receipt Date: 20210818
  Transmission Date: 20211014
  Serious: No
  Sender: FDA-Public Use
  Company Number: US-ELI_LILLY_AND_COMPANY-US202108007029

PATIENT
  Age: 55 Year
  Sex: Female

DRUGS (3)
  1. TALTZ [Suspect]
     Active Substance: IXEKIZUMAB
     Indication: PSORIATIC ARTHROPATHY
     Dosage: 80 MG, UNKNOWN
     Route: 065
  2. COVID?19 VACCINE NOS. [Suspect]
     Active Substance: COVID-19 VACCINE NOS
     Dosage: UNK UNK, UNKNOWN
     Route: 065
     Dates: start: 2021
  3. COVID?19 VACCINE NOS. [Suspect]
     Active Substance: COVID-19 VACCINE NOS
     Indication: PRODUCT USED FOR UNKNOWN INDICATION
     Dosage: UNK UNK, UNKNOWN
     Route: 065
     Dates: start: 202104

REACTIONS (1)
  - SARS-CoV-2 antibody test negative [Not Recovered/Not Resolved]

NARRATIVE: CASE EVENT DATE: 20210814
